FAERS Safety Report 5847483-8 (Version None)
Quarter: 2008Q3

REPORT INFORMATION
  Report Type: 
  Country: None (occurrence: None)
  Receive Date: 20080814
  Receipt Date: 20080804
  Transmission Date: 20090109
  Serious: Yes (Other)
  Sender: FDA-Public Use
  Company Number: ALA_00155_2008

PATIENT
  Age: 61 Year
  Sex: Male

DRUGS (8)
  1. REGLAN [Suspect]
     Indication: DRUG USE FOR UNKNOWN INDICATION
     Dosage: DF
  2. AMBIEN [Suspect]
     Indication: INSOMNIA
     Dosage: 10 MG PRN ORAL
     Route: 048
  3. ATIVAN [Suspect]
     Indication: DRUG USE FOR UNKNOWN INDICATION
     Dosage: TOOK SEVERAL TABLETS IN HIS SLEEP, DF
  4. PHENERGAN [Suspect]
     Indication: DRUG USE FOR UNKNOWN INDICATION
     Dosage: DF
  5. PROZAC /00724401/ [Concomitant]
  6. TEMAZEPAM [Concomitant]
  7. ACIPHEX [Concomitant]
  8. ALTACE [Concomitant]

REACTIONS (8)
  - ABNORMAL BEHAVIOUR [None]
  - ABNORMAL SLEEP-RELATED EVENT [None]
  - DELIRIUM [None]
  - IMPAIRED DRIVING ABILITY [None]
  - INAPPROPRIATE SCHEDULE OF DRUG ADMINISTRATION [None]
  - LEGAL PROBLEM [None]
  - ROAD TRAFFIC ACCIDENT [None]
  - SOMNAMBULISM [None]
